APPROVED DRUG PRODUCT: METHYLDOPA
Active Ingredient: METHYLDOPA
Strength: 500MG
Dosage Form/Route: TABLET;ORAL
Application: A070452 | Product #001
Applicant: PUREPAC PHARMACEUTICAL CO
Approved: Feb 7, 1986 | RLD: No | RS: No | Type: DISCN